FAERS Safety Report 9709081 (Version 3)
Quarter: 2013Q4

REPORT INFORMATION
  Report Type: Spontaneous
  Country: AR (occurrence: None)
  Receive Date: 20131122
  Receipt Date: 20131206
  Transmission Date: 20140711
  Serious: Yes (Other)
  Sender: FDA-Public Use
  Company Number: VAL_02829_2013

PATIENT
  Age: 49 Year
  Sex: Female

DRUGS (1)
  1. METHYLERGOMETRINE [Suspect]
     Indication: MENORRHAGIA
     Route: 048
     Dates: start: 201310

REACTIONS (5)
  - Anticoagulation drug level below therapeutic [None]
  - No adverse event [None]
  - Anxiety [None]
  - Therapy change [None]
  - Drug dose omission [None]
